FAERS Safety Report 7192283-2 (Version None)
Quarter: 2010Q4

REPORT INFORMATION
  Report Type: 
  Country: None (occurrence: None)
  Receive Date: 20101223
  Receipt Date: 20101209
  Transmission Date: 20110411
  Serious: Yes (Life-Threatening)
  Sender: FDA-Public Use
  Company Number: IT-BAYER-2010-003370

PATIENT
  Sex: Male

DRUGS (4)
  1. NEXAVAR [Suspect]
     Dosage: 800 MG, QD
     Route: 048
     Dates: start: 20080828, end: 20081006
  2. LASIX [Concomitant]
  3. UNCODEABLE ^UNCLASSIFIABLE^ [Concomitant]
  4. DURAGESIC-100 [Concomitant]

REACTIONS (2)
  - ABDOMINAL PAIN [None]
  - DIARRHOEA [None]
